FAERS Safety Report 9118168 (Version 1)
Quarter: 2013Q1

REPORT INFORMATION
  Report Type: Report from Study
  Country: US (occurrence: US)
  Receive Date: 20130129
  Receipt Date: 20130129
  Transmission Date: 20140127
  Serious: No
  Sender: FDA-Public Use
  Company Number: US-ABBOTT-12P-163-0936961-00

PATIENT
  Age: 59 Year
  Sex: Female

DRUGS (25)
  1. HUMIRA 40 MG/0.8 ML PEN [Suspect]
     Indication: RHEUMATOID ARTHRITIS
     Dates: start: 20111017, end: 20120223
  2. HUMIRA 40 MG/0.8 ML PEN [Suspect]
  3. PREDNISONE [Concomitant]
     Indication: PRODUCT USED FOR UNKNOWN INDICATION
     Dosage: 8MG = 4MG IN THE AM AND 4MG IN THE PM
  4. MELOXICAM [Concomitant]
     Indication: PRODUCT USED FOR UNKNOWN INDICATION
     Dosage: 7.5MG DAILY
  5. PRILOSEC [Concomitant]
     Indication: PRODUCT USED FOR UNKNOWN INDICATION
     Dosage: DAILY
  6. ASPIRIN [Concomitant]
     Indication: PRODUCT USED FOR UNKNOWN INDICATION
  7. D3 PLUS RESERVATOL [Concomitant]
     Indication: PRODUCT USED FOR UNKNOWN INDICATION
     Dosage: 5000 MG/200 MG DAILY
  8. OMEGA 3 [Concomitant]
     Indication: PRODUCT USED FOR UNKNOWN INDICATION
     Dosage: DAILY
  9. CALCIUM W/POTASSIUM [Concomitant]
     Indication: PRODUCT USED FOR UNKNOWN INDICATION
     Dosage: 800 MG/200 MG DAILY
  10. BLOOD PRESSURE AND GRAPE SEED EXTRACT/TENVIDA [Concomitant]
     Indication: PRODUCT USED FOR UNKNOWN INDICATION
     Dosage: 150 MG/500 MG DAILY
  11. B6 [Concomitant]
     Indication: PRODUCT USED FOR UNKNOWN INDICATION
  12. B COMPLEX [Concomitant]
     Indication: PRODUCT USED FOR UNKNOWN INDICATION
     Dosage: DAILY
  13. GLUCOSAMINE MSM [Concomitant]
     Indication: PRODUCT USED FOR UNKNOWN INDICATION
  14. L CARNITINE [Concomitant]
     Indication: PRODUCT USED FOR UNKNOWN INDICATION
  15. CINNAMON [Concomitant]
     Indication: DIABETES MELLITUS
  16. RED YEAST [Concomitant]
     Indication: BLOOD CHOLESTEROL
     Dosage: DAILY
  17. MAGNESIUM [Concomitant]
     Indication: PRODUCT USED FOR UNKNOWN INDICATION
  18. VITAMIN E [Concomitant]
     Indication: PRODUCT USED FOR UNKNOWN INDICATION
  19. CO ENZYME Q10 [Concomitant]
     Indication: PRODUCT USED FOR UNKNOWN INDICATION
     Dosage: DAILY
  20. COLLAGEN/HYALURONIC ACID [Concomitant]
     Indication: PRODUCT USED FOR UNKNOWN INDICATION
     Dosage: DAILY
  21. BIOTIN [Concomitant]
     Indication: PRODUCT USED FOR UNKNOWN INDICATION
     Dosage: DAILY
  22. SULFASALAZINE [Concomitant]
     Indication: RHEUMATOID ARTHRITIS
  23. SULFASALAZINE [Concomitant]
     Dates: start: 20120508
  24. JANUMET [Concomitant]
     Indication: DIABETES MELLITUS
  25. CRESTOR [Concomitant]
     Indication: PROPHYLAXIS

REACTIONS (10)
  - Fatigue [Recovering/Resolving]
  - Inflammation [Recovering/Resolving]
  - Rash pruritic [Recovering/Resolving]
  - Bed bug infestation [Recovering/Resolving]
  - Photosensitivity reaction [Recovering/Resolving]
  - Rheumatoid arthritis [Recovering/Resolving]
  - Gait disturbance [Recovering/Resolving]
  - Arthralgia [Recovering/Resolving]
  - Musculoskeletal stiffness [Recovering/Resolving]
  - Glycosylated haemoglobin decreased [Recovering/Resolving]
